FAERS Safety Report 15895080 (Version 1)
Quarter: 2019Q1

REPORT INFORMATION
  Report Type: Spontaneous
  Country: US (occurrence: US)
  Receive Date: 20190126
  Receipt Date: 20190126
  Transmission Date: 20190417
  Serious: Yes (Disabling)
  Sender: FDA-Public Use
  Company Number: None

PATIENT
  Age: 43 Year
  Sex: Male
  Weight: 112.05 kg

DRUGS (1)
  1. GADOLINIUM CONTRAST DYE [Suspect]
     Active Substance: GADOLINIUM

REACTIONS (7)
  - Feeling abnormal [None]
  - Arthralgia [None]
  - Joint stiffness [None]
  - Pain in extremity [None]
  - Burning sensation [None]
  - Skin discolouration [None]
  - Headache [None]

NARRATIVE: CASE EVENT DATE: 20150607
